FAERS Safety Report 5293771-6 (Version None)
Quarter: 2007Q2

REPORT INFORMATION
  Report Type: 
  Country: None (occurrence: None)
  Receive Date: 20070411
  Receipt Date: 20070330
  Transmission Date: 20071010
  Serious: Yes (Death, Other)
  Sender: FDA-Public Use
  Company Number: US-PFIZER INC-2006007845

PATIENT
  Sex: Male

DRUGS (5)
  1. NEURONTIN [Suspect]
     Indication: NEUROPATHY
  2. WELLBUTRIN SR [Suspect]
  3. REMERON [Concomitant]
     Route: 048
  4. INDERAL [Concomitant]
  5. ATENOLOL [Concomitant]

REACTIONS (3)
  - DEATH [None]
  - DRUG INEFFECTIVE [None]
  - SUICIDE ATTEMPT [None]
